FAERS Safety Report 4943922-5 (Version None)
Quarter: 2006Q1

REPORT INFORMATION
  Report Type: 
  Country: None (occurrence: None)
  Receive Date: 20060313
  Receipt Date: 20060313
  Transmission Date: 20060701
  Serious: No
  Sender: FDA-Public Use
  Company Number: None

PATIENT

DRUGS (1)
  1. BD E-Z SCRUB  408 SURGICAL SCRUB BRUSH/SPONGE [Suspect]

REACTIONS (1)
  - RASH [None]
